FAERS Safety Report 5166188-2 (Version None)
Quarter: 2006Q4

REPORT INFORMATION
  Report Type: 
  Country: None (occurrence: None)
  Receive Date: 20061129
  Receipt Date: 20061116
  Transmission Date: 20070319
  Serious: Yes (Other)
  Sender: FDA-Public Use
  Company Number: 2006142376

PATIENT
  Sex: Female

DRUGS (4)
  1. ZYVOX [Suspect]
     Indication: STAPHYLOCOCCAL INFECTION
     Dates: end: 20060501
  2. GLUCOPHAGE [Concomitant]
  3. METFORMIN HCL [Concomitant]
  4. UNSPECIFIED PSYCHOTROPIC MEDICATION [Concomitant]

REACTIONS (3)
  - NEUTROPENIA [None]
  - POST PROCEDURAL COMPLICATION [None]
  - WOUND [None]
